FAERS Safety Report 26101055 (Version 1)
Quarter: 2025Q4

REPORT INFORMATION
  Report Type: Spontaneous
  Country: JP (occurrence: JP)
  Receive Date: 20251128
  Receipt Date: 20251128
  Transmission Date: 20260117
  Serious: Yes (Hospitalization)
  Sender: JAZZ
  Company Number: JP-JAZZ PHARMACEUTICALS-2025-JP-024090

PATIENT
  Age: 68 Year
  Sex: Female

DRUGS (2)
  1. VYXEOS [Suspect]
     Active Substance: CYTARABINE\DAUNORUBICIN
     Indication: Acute myeloid leukaemia
     Dosage: UNK
  2. VYXEOS [Suspect]
     Active Substance: CYTARABINE\DAUNORUBICIN
     Dosage: UNK
     Dates: start: 20250915, end: 20250917

REACTIONS (4)
  - Myelosuppression [Not Recovered/Not Resolved]
  - Cytopenia [Not Recovered/Not Resolved]
  - Infection [Recovering/Resolving]
  - Aplastic anaemia [Unknown]

NARRATIVE: CASE EVENT DATE: 20251104
